FAERS Safety Report 8159305-3 (Version None)
Quarter: 2012Q1

REPORT INFORMATION
  Report Type: 
  Country: None (occurrence: None)
  Receive Date: 20120223
  Receipt Date: 20120217
  Transmission Date: 20120608
  Serious: Yes (Other)
  Sender: FDA-Public Use
  Company Number: VE-PFIZER INC-2012046926

PATIENT
  Age: 18 Year
  Sex: Female

DRUGS (1)
  1. ZOLOFT [Suspect]
     Indication: NERVOUSNESS
     Dosage: DAILY
     Route: 048
     Dates: start: 20100101, end: 20110501

REACTIONS (1)
  - CAESAREAN SECTION [None]
